FAERS Safety Report 4848343-1 (Version None)
Quarter: 2005Q4

REPORT INFORMATION
  Report Type: 
  Country: None (occurrence: None)
  Receive Date: 20051208
  Receipt Date: 20051006
  Transmission Date: 20060501
  Serious: Yes (Hospitalization)
  Sender: FDA-Public Use
  Company Number: US-MERCK-0510USA05529

PATIENT
  Age: 77 Year
  Sex: Female
  Weight: 50 kg

DRUGS (4)
  1. VIOXX [Suspect]
     Indication: NECK INJURY
     Route: 048
     Dates: start: 20030516, end: 20040701
  2. VIOXX [Suspect]
     Indication: ARTHRITIS
     Route: 048
     Dates: start: 20030516, end: 20040701
  3. FOSAMAX [Concomitant]
     Route: 065
  4. CALCIUM (UNSPECIFIED) [Concomitant]
     Route: 065

REACTIONS (2)
  - HYPERTENSION [None]
  - MYOCARDIAL INFARCTION [None]
